FAERS Safety Report 11130509 (Version 3)
Quarter: 2015Q3

REPORT INFORMATION
  Report Type: Spontaneous
  Country: US (occurrence: US)
  Receive Date: 20150522
  Receipt Date: 20150903
  Transmission Date: 20151125
  Serious: No
  Sender: FDA-Public Use
  Company Number: US-AMGEN-USASP2015047263

PATIENT
  Age: 56 Year
  Sex: Female

DRUGS (1)
  1. ENBREL [Suspect]
     Active Substance: ETANERCEPT
     Indication: ANKYLOSING SPONDYLITIS
     Dosage: 50 MG, WEEKLY
     Route: 058
     Dates: start: 20150428

REACTIONS (10)
  - Inflammation [Not Recovered/Not Resolved]
  - Gait disturbance [Not Recovered/Not Resolved]
  - Injection site pruritus [Unknown]
  - Injection site swelling [Unknown]
  - Injection site erythema [Unknown]
  - Arthralgia [Not Recovered/Not Resolved]
  - Oral herpes [Not Recovered/Not Resolved]
  - Injection site reaction [Unknown]
  - Pain in extremity [Unknown]
  - Injection site urticaria [Unknown]

NARRATIVE: CASE EVENT DATE: 2015
